FAERS Safety Report 13720010 (Version 1)
Quarter: 2017Q3

REPORT INFORMATION
  Report Type: Spontaneous
  Country: CA (occurrence: CA)
  Receive Date: 20170705
  Receipt Date: 20170705
  Transmission Date: 20171127
  Serious: Yes (Other)
  Sender: FDA-Public Use
  Company Number: CA-ROCHE-1959337

PATIENT
  Sex: Female

DRUGS (3)
  1. RELAFEN [Concomitant]
     Active Substance: NABUMETONE
     Dosage: 2 TABLETS BID
     Route: 048
  2. PREDNISONE. [Concomitant]
     Active Substance: PREDNISONE
     Route: 065
  3. ACTEMRA [Suspect]
     Active Substance: TOCILIZUMAB
     Indication: PRODUCT USED FOR UNKNOWN INDICATION
     Route: 065
     Dates: end: 20170622

REACTIONS (5)
  - Hypothyroidism [Unknown]
  - Hypertension [Unknown]
  - Drug ineffective [Unknown]
  - Osteoporosis [Unknown]
  - Pain [Unknown]
